FAERS Safety Report 4568431-7 (Version None)
Quarter: 2005Q1

REPORT INFORMATION
  Report Type: 
  Country: None (occurrence: None)
  Receive Date: 20050131
  Receipt Date: 20050125
  Transmission Date: 20050727
  Serious: Yes (Death)
  Sender: FDA-Public Use
  Company Number: 2005-124621-NL

PATIENT
  Age: 74 Year
  Sex: Female

DRUGS (14)
  1. DANAPAROID SODIUM [Suspect]
     Indication: DISSEMINATED INTRAVASCULAR COAGULATION
     Dosage: 1250 ANTI_XA BID INTRAVENOUS (NOS)
     Route: 042
     Dates: start: 20040502, end: 20040518
  2. NAFAMOSTAT MESILATE [Concomitant]
  3. SOLDEM 3A [Concomitant]
  4. PREDNISOLONE [Concomitant]
  5. FUROSEMIDE [Concomitant]
  6. RANITIDINE HYDROCHLORIDE [Concomitant]
  7. OMEPRAZOLE [Concomitant]
  8. HICALIQ [Concomitant]
  9. SOHVITA [Concomitant]
  10. PROTEAMIN 12X [Concomitant]
  11. ISOPHANE INSULIN [Concomitant]
  12. MICAFUNGIN SODIUM [Concomitant]
  13. CIPROFLOXACIN HYDROCHLORIDE [Concomitant]
  14. DOPAMINE HCL [Concomitant]

REACTIONS (3)
  - BLOOD LACTATE DEHYDROGENASE INCREASED [None]
  - BLOOD UREA INCREASED [None]
  - SEPSIS [None]
